FAERS Safety Report 24677714 (Version 1)
Quarter: 2024Q4

REPORT INFORMATION
  Report Type: Spontaneous
  Country: US (occurrence: US)
  Receive Date: 20241129
  Receipt Date: 20241129
  Transmission Date: 20250114
  Serious: No
  Sender: ALEXION PHARMACEUTICALS
  Company Number: US-AstraZeneca-CH-00711511AP

PATIENT
  Age: 73 Year

DRUGS (12)
  1. BYDUREON BCISE [Suspect]
     Active Substance: EXENATIDE
     Dosage: 2 MILLIGRAM, QW
     Route: 065
  2. BYDUREON BCISE [Suspect]
     Active Substance: EXENATIDE
     Dosage: 2 MILLIGRAM, QW
  3. BYDUREON BCISE [Suspect]
     Active Substance: EXENATIDE
     Dosage: 2 MILLIGRAM, QW
     Route: 065
  4. BYDUREON BCISE [Suspect]
     Active Substance: EXENATIDE
     Dosage: 2 MILLIGRAM, QW
  5. BYETTA [Suspect]
     Active Substance: EXENATIDE
     Route: 065
  6. BYETTA [Suspect]
     Active Substance: EXENATIDE
  7. BYETTA [Suspect]
     Active Substance: EXENATIDE
     Route: 065
  8. BYETTA [Suspect]
     Active Substance: EXENATIDE
  9. BYDUREON [Suspect]
     Active Substance: EXENATIDE
     Route: 065
  10. BYDUREON [Suspect]
     Active Substance: EXENATIDE
  11. BYDUREON [Suspect]
     Active Substance: EXENATIDE
     Route: 065
  12. BYDUREON [Suspect]
     Active Substance: EXENATIDE

REACTIONS (4)
  - Injection site haemorrhage [Unknown]
  - Injection site discharge [Unknown]
  - Product dose omission issue [Unknown]
  - Device use issue [Unknown]
